FAERS Safety Report 8481565-X (Version None)
Quarter: 2012Q3

REPORT INFORMATION
  Report Type: 
  Country: None (occurrence: None)
  Receive Date: 20120702
  Receipt Date: 20120625
  Transmission Date: 20120928
  Serious: Yes (Hospitalization, Disabling, Other)
  Sender: FDA-Public Use
  Company Number: US-TEVA-345075USA

PATIENT
  Sex: Female
  Weight: 180 kg

DRUGS (26)
  1. IBUPROFEN [Suspect]
     Dosage: 2400 MILLIGRAM;
     Route: 048
     Dates: start: 20110601
  2. ROSUVASTATIN [Suspect]
     Dosage: 20 MILLIGRAM;
     Route: 048
     Dates: start: 20110601
  3. METFORMIN HYDROCHLORIDE [Concomitant]
     Dosage: 2000 MILLIGRAM;
     Route: 048
     Dates: start: 20110601
  4. POTASSIUM [Concomitant]
     Dosage: 297 MILLIGRAM;
     Route: 048
     Dates: start: 20110713
  5. SAVELLA [Suspect]
     Dosage: 50 MILLIGRAM;
     Route: 048
     Dates: start: 20110910, end: 20110912
  6. AMOXICILLIN [Concomitant]
     Dosage: 1000 MILLIGRAM;
     Route: 048
  7. CINNAMON [Concomitant]
     Dosage: 1000 MILLIGRAM;
     Route: 048
  8. VACCINIUM MACROCARPON [Concomitant]
     Dosage: 500 MILLIGRAM;
     Route: 048
     Dates: start: 20110601
  9. BUPROPION HCL [Concomitant]
     Dosage: 300 MILLIGRAM;
     Route: 048
  10. OMEPRAZOLE [Suspect]
     Dosage: 20 MILLIGRAM;
     Route: 048
  11. SAVELLA [Suspect]
     Indication: FIBROMYALGIA
     Dosage: 12.5 MILLIGRAM;
     Route: 048
     Dates: start: 20110907, end: 20110907
  12. LISINOPRIL [Concomitant]
     Dosage: 10 MILLIGRAM;
     Route: 048
     Dates: start: 20110622
  13. M.V.I. [Concomitant]
     Route: 048
     Dates: start: 20110601
  14. WARFARIN SODIUM [Concomitant]
     Dosage: 7 MILLIGRAM;
     Route: 048
  15. LOVAZA [Suspect]
     Route: 048
     Dates: start: 20110907
  16. ALLOPURINOL [Concomitant]
     Dosage: 300 MILLIGRAM;
     Route: 048
     Dates: start: 20110613
  17. AMITRIPTYLINE HCL [Concomitant]
     Dosage: 50 MILLIGRAM;
     Route: 048
     Dates: start: 20110601
  18. GLIMEPIRIDE [Concomitant]
     Dosage: 4 MILLIGRAM;
     Route: 048
     Dates: start: 20110907
  19. PROPRANOLOL [Concomitant]
     Dosage: 80 MILLIGRAM;
     Route: 048
     Dates: start: 20110902
  20. TORSEMIDE [Suspect]
     Dosage: 80 MILLIGRAM;
     Route: 048
     Dates: start: 20110713
  21. FENOFIBRATE [Concomitant]
     Dosage: 160 MILLIGRAM;
     Route: 048
  22. OXYBUTYNIN [Concomitant]
     Dosage: 10 MILLIGRAM;
     Route: 048
     Dates: start: 20110601
  23. COLECALCIFEROL [Concomitant]
     Dosage: 5000 IU (INTERNATIONAL UNIT);
     Route: 048
     Dates: start: 20110907
  24. VICODIN [Concomitant]
     Dosage: 1 EVERY 6 HOURS AS NEEDED.
     Route: 048
     Dates: start: 20110907
  25. PHENTERMINE HYDROCHLORIDE [Concomitant]
     Dosage: 37.5 MILLIGRAM;
     Route: 048
  26. LEVOTHYROXINE SODIUM [Concomitant]
     Dosage: 250 MICROGRAM;
     Route: 048

REACTIONS (3)
  - ANAPHYLACTIC SHOCK [None]
  - DERMATITIS EXFOLIATIVE [None]
  - DIARRHOEA [None]
